FAERS Safety Report 6904070-8 (Version None)
Quarter: 2010Q3

REPORT INFORMATION
  Report Type: 
  Country: None (occurrence: None)
  Receive Date: 20100804
  Receipt Date: 20090306
  Transmission Date: 20110219
  Serious: Yes (Other)
  Sender: FDA-Public Use
  Company Number: US-PFIZER INC-2009171488

PATIENT
  Sex: Female
  Weight: 81.633 kg

DRUGS (14)
  1. LYRICA [Suspect]
     Indication: NEUROPATHY PERIPHERAL
     Dosage: 100 MG, 2X/DAY
     Dates: start: 20090101
  2. CLONAZEPAM [Concomitant]
     Indication: SLEEP DISORDER
     Dosage: 2 MG, 1X/DAY
  3. OMEPRAZOLE [Concomitant]
     Dosage: 20 MG, 1X/DAY
  4. HYDROCHLOROTHIAZIDE [Concomitant]
     Dosage: 25 MG, 1X/DAY
  5. LABETALOL [Concomitant]
     Dosage: 20 MG, 1X/DAY
  6. LEVOTHYROXINE [Concomitant]
     Dosage: 225 MG, 1X/DAY
  7. ENALAPRIL [Concomitant]
     Dosage: 20 MG, 1X/DAY
  8. PROCHLORPERAZINE [Concomitant]
  9. OXYCONTIN [Concomitant]
     Dosage: UNK
  10. MORPHINE SULFATE [Concomitant]
     Dosage: UNK
  11. ZINC SULFATE [Concomitant]
     Dosage: UNK
  12. SOMA [Concomitant]
     Dosage: 350 MG, 4X/DAY
  13. DIURETICS [Concomitant]
     Dosage: UNK
  14. CREON [Concomitant]
     Dosage: UNK

REACTIONS (2)
  - OEDEMA PERIPHERAL [None]
  - WEIGHT INCREASED [None]
